FAERS Safety Report 7915602-5 (Version None)
Quarter: 2011Q4

REPORT INFORMATION
  Report Type: 
  Country: None (occurrence: None)
  Receive Date: 20111115
  Receipt Date: 20110629
  Transmission Date: 20120403
  Serious: No
  Sender: FDA-Public Use
  Company Number: US-BRISTOL-MYERS SQUIBB COMPANY-15863897

PATIENT

DRUGS (1)
  1. YERVOY [Suspect]
     Dosage: FIRST INFUSION

REACTIONS (2)
  - EYE DISORDER [None]
  - HEADACHE [None]
